FAERS Safety Report 7191616-0 (Version None)
Quarter: 2010Q4

REPORT INFORMATION
  Report Type: 
  Country: None (occurrence: None)
  Receive Date: 20101223
  Receipt Date: 20101209
  Transmission Date: 20110411
  Serious: Yes (Other)
  Sender: FDA-Public Use
  Company Number: US-BAYER-2010-004368

PATIENT
  Sex: Female

DRUGS (3)
  1. YASMIN [Suspect]
     Dosage: UNK
     Route: 048
     Dates: start: 20020101
  2. YAZ [Suspect]
     Dosage: UNK
     Route: 048
     Dates: start: 20020101
  3. OCELLA [Suspect]
     Dosage: UNK
     Route: 048
     Dates: start: 20020101

REACTIONS (6)
  - CHOLECYSTECTOMY [None]
  - DEEP VEIN THROMBOSIS [None]
  - GALLBLADDER DISORDER [None]
  - MULTIPLE INJURIES [None]
  - PAIN [None]
  - PULMONARY EMBOLISM [None]
